FAERS Safety Report 9632197 (Version 1)
Quarter: 2013Q4

REPORT INFORMATION
  Report Type: Spontaneous
  Country: US (occurrence: US)
  Receive Date: 20131018
  Receipt Date: 20131018
  Transmission Date: 20140711
  Serious: Yes (Other)
  Sender: FDA-Public Use
  Company Number: US-BAYER-2013-124225

PATIENT
  Age: 53 Year
  Sex: Male

DRUGS (7)
  1. ESTRADIOL HEMIHYDRATE (PATCH) [Suspect]
     Indication: FEMINISATION ACQUIRED
     Dosage: 0.1 MG, UNK
     Route: 062
  2. SPIRONOLACTONE [Concomitant]
     Indication: FEMINISATION ACQUIRED
     Dosage: 50 MG, UNK
     Route: 048
  3. CARBIDOPA W/LEVODOPA [Concomitant]
     Indication: PARKINSON^S DISEASE
     Dosage: 25/100
  4. CARBIDOPA W/LEVODOPA [Concomitant]
     Indication: PARKINSON^S DISEASE
     Dosage: REDUCED TO 3 TABS DAILY (NOS)
  5. ROPINIROLE [Concomitant]
     Indication: PARKINSON^S DISEASE
     Dosage: 6 MG, BID
  6. ROPINIROLE [Concomitant]
     Indication: PARKINSON^S DISEASE
     Dosage: 8 MG, UNK
  7. AMANTADINE [Concomitant]
     Indication: PARKINSON^S DISEASE
     Dosage: 100 MG, BID

REACTIONS (3)
  - Dyskinesia [Recovered/Resolved]
  - Therapeutic response unexpected [None]
  - Off label use [None]
